FAERS Safety Report 5116819-8 (Version None)
Quarter: 2006Q3

REPORT INFORMATION
  Report Type: 
  Country: None (occurrence: None)
  Receive Date: 20060925
  Receipt Date: 20060912
  Transmission Date: 20061208
  Serious: Yes (Life-Threatening, Hospitalization)
  Sender: FDA-Public Use
  Company Number: 2006093010

PATIENT
  Age: 50 Year
  Sex: Male
  Weight: 122.4712 kg

DRUGS (9)
  1. LYRICA [Suspect]
     Indication: DIABETIC NEUROPATHY
     Dosage: 150 MG (75 MG, 2 IN 1 D)
     Dates: start: 20060626, end: 20060706
  2. INSULIN (INSULIN) [Concomitant]
  3. LUVOX [Concomitant]
  4. RISPERDAL [Concomitant]
  5. GLUCOTROL [Concomitant]
  6. METFORMIN HCL [Concomitant]
  7. ZESTRIL [Concomitant]
  8. SINEQUAN [Concomitant]
  9. ALL OTHER THERAPEUTIC PRODUCTS [Concomitant]

REACTIONS (4)
  - CARDIAC FAILURE CONGESTIVE [None]
  - GENERALISED OEDEMA [None]
  - PULMONARY OEDEMA [None]
  - WEIGHT INCREASED [None]
